FAERS Safety Report 4608471-2 (Version None)
Quarter: 2005Q1

REPORT INFORMATION
  Report Type: 
  Country: None (occurrence: None)
  Receive Date: 20050311
  Receipt Date: 20050311
  Transmission Date: 20050727
  Serious: Yes (Life-Threatening, Hospitalization)
  Sender: FDA-Public Use
  Company Number: None

PATIENT
  Sex: Female

DRUGS (1)
  1. ETODOLAC [Suspect]
     Indication: ARTHRITIS
     Dosage: 300 MG BID ORAL
     Route: 048
     Dates: start: 20040714, end: 20040728

REACTIONS (1)
  - STEVENS-JOHNSON SYNDROME [None]
